FAERS Safety Report 7219527-2 (Version None)
Quarter: 2011Q1

REPORT INFORMATION
  Report Type: 
  Country: None (occurrence: None)
  Receive Date: 20110111
  Receipt Date: 20110104
  Transmission Date: 20110831
  Serious: Yes (Other)
  Sender: FDA-Public Use
  Company Number: US-JNJFOC-20110100800

PATIENT
  Sex: Male
  Weight: 72.58 kg

DRUGS (12)
  1. LIBRAX [Concomitant]
  2. COZAAR [Concomitant]
     Indication: HYPERTENSION
  3. AZATHIOPRINE [Concomitant]
     Indication: COLITIS ULCERATIVE
  4. CORTIFOAM [Concomitant]
  5. TERAZOSIN HCL [Concomitant]
     Indication: BENIGN PROSTATIC HYPERPLASIA
  6. MINOXIDIL [Concomitant]
     Indication: HYPERTENSION
  7. REMICADE [Suspect]
     Indication: COLITIS ULCERATIVE
     Route: 042
  8. COLAZAL [Concomitant]
     Indication: COLITIS ULCERATIVE
  9. CANASA [Concomitant]
  10. DICYCLOMINE [Concomitant]
     Indication: COLITIS ULCERATIVE
  11. LASIX [Concomitant]
     Indication: HYPERTENSION
  12. COREG [Concomitant]
     Indication: HYPERTENSION

REACTIONS (1)
  - BLADDER CANCER [None]
